FAERS Safety Report 4371075-3 (Version None)
Quarter: 2004Q2

REPORT INFORMATION
  Report Type: 
  Country: None (occurrence: None)
  Receive Date: 20040604
  Receipt Date: 20040223
  Transmission Date: 20050107
  Serious: Yes (Other)
  Sender: FDA-Public Use
  Company Number: PHBS2004JP02760

PATIENT
  Age: 93 Year
  Sex: Female

DRUGS (3)
  1. DIOVAN [Suspect]
     Dosage: 20 MG/DAY
     Route: 048
     Dates: start: 20031001, end: 20040210
  2. LASIX [Concomitant]
     Dosage: 20 MG, UNK
     Dates: end: 20040210
  3. NORVASC [Concomitant]
     Dosage: 2.5 MG/DAY
     Route: 048
     Dates: end: 20040210

REACTIONS (8)
  - BLOOD LACTATE DEHYDROGENASE INCREASED [None]
  - C-REACTIVE PROTEIN INCREASED [None]
  - EOSINOPHIL COUNT INCREASED [None]
  - ERYTHEMA MULTIFORME [None]
  - NAUSEA [None]
  - PRURITUS [None]
  - RASH [None]
  - URTICARIA [None]
